FAERS Safety Report 5190383-X (Version None)
Quarter: 2006Q4

REPORT INFORMATION
  Report Type: 
  Country: None (occurrence: None)
  Receive Date: 20061222
  Receipt Date: 20060330
  Transmission Date: 20070319
  Serious: Yes (Death)
  Sender: FDA-Public Use
  Company Number: NL-ROCHE-442448

PATIENT
  Age: 58 Year
  Sex: Male

DRUGS (5)
  1. CAPECITABINE [Suspect]
     Dosage: ADMINISTERED AS A SPLIT DAILY DOSE ON DAYS 1-14 OF A 3 WEEK CYCLE (PER PROTOCOL)
     Route: 048
     Dates: start: 20060309
  2. BEVACIZUMAB [Suspect]
     Dosage: ADMINISTERED ON DAY 1 OF A 3 WEEK CYCLE (PER PROTOCOL)
     Route: 042
     Dates: start: 20060309
  3. OXALIPLATIN [Suspect]
     Dosage: ADMINISTERED ON DAY 1 OF A 3 WEEK CYCLE (PER PROTOCOL)
     Route: 042
     Dates: start: 20060309
  4. CETUXIMAB [Suspect]
     Dosage: ADMINISTERED AS AN INITIAL 880 MG DOSE ON DAY 1 OF THE FIRST CYCLE, SEBSEQUENTLY 550 MG DOSE WEEKLY+
     Route: 042
     Dates: start: 20060309
  5. CHLOORTALIDON [Concomitant]
     Dosage: DOSE REGIMEN REPORTED AS 2 DD 25 MG

REACTIONS (2)
  - CARDIAC ARREST [None]
  - SEPSIS [None]
